FAERS Safety Report 19962947 (Version 1)
Quarter: 2021Q4

REPORT INFORMATION
  Report Type: Spontaneous
  Country: US (occurrence: US)
  Receive Date: 20211013
  Receipt Date: 20211013
  Transmission Date: 20220303
  Serious: No
  Sender: FDA-Public Use
  Company Number: None

PATIENT
  Age: 7 Year
  Sex: Male

DRUGS (1)
  1. NORDITROPIN [Suspect]
     Active Substance: SOMATROPIN
     Indication: Hypopituitarism
     Route: 058
     Dates: start: 20200921

REACTIONS (6)
  - Aggression [None]
  - Insomnia [None]
  - Depression [None]
  - Emotional disorder [None]
  - Hyperglycaemia [None]
  - Psychomotor hyperactivity [None]

NARRATIVE: CASE EVENT DATE: 20211006
